FAERS Safety Report 12982186 (Version 1)
Quarter: 2016Q4

REPORT INFORMATION
  Report Type: Spontaneous
  Country: US (occurrence: US)
  Receive Date: 20161128
  Receipt Date: 20161128
  Transmission Date: 20170207
  Serious: Yes (Hospitalization)
  Sender: FDA-Public Use
  Company Number: None

PATIENT
  Age: 58 Year
  Sex: Female
  Weight: 88.2 kg

DRUGS (22)
  1. ZYPREXA [Concomitant]
     Active Substance: OLANZAPINE
  2. ONDANSETRON [Concomitant]
     Active Substance: ONDANSETRON
  3. VALACYCLOVIR [Concomitant]
     Active Substance: VALACYCLOVIR HYDROCHLORIDE
  4. FOLIC ACID. [Concomitant]
     Active Substance: FOLIC ACID
  5. MYCOLOG CREAM [Concomitant]
  6. PROCHLORPERAZINE. [Concomitant]
     Active Substance: PROCHLORPERAZINE
  7. FLONASE [Concomitant]
     Active Substance: FLUTICASONE PROPIONATE
  8. MULTIPLE VITAMIN [Concomitant]
     Active Substance: VITAMINS
  9. TACROLIMUS. [Concomitant]
     Active Substance: TACROLIMUS
  10. ULTRAM [Concomitant]
     Active Substance: TRAMADOL HYDROCHLORIDE
  11. NORMAL SALINE [Concomitant]
     Active Substance: SODIUM CHLORIDE
  12. PEPCID [Concomitant]
     Active Substance: FAMOTIDINE
  13. AZACITIDINE. [Suspect]
     Active Substance: AZACITIDINE
     Indication: ACUTE MYELOID LEUKAEMIA
     Route: 058
     Dates: start: 20161024
  14. VALPORIC ACID [Suspect]
     Active Substance: VALPROIC ACID
     Indication: ACUTE MYELOID LEUKAEMIA
     Route: 048
     Dates: start: 20161024
  15. FLUCONAZOLE. [Concomitant]
     Active Substance: FLUCONAZOLE
  16. ATIVAN [Concomitant]
     Active Substance: LORAZEPAM
  17. HYDROCORTISONE 0.5% CREAM [Concomitant]
  18. LORATADINE. [Concomitant]
     Active Substance: LORATADINE
  19. CARBOXYMETHYLCELLULOSE [Concomitant]
     Active Substance: CARBOXYMETHYLCELLULOSE
  20. MEDROL [Concomitant]
     Active Substance: METHYLPREDNISOLONE
  21. BACTRIM [Concomitant]
     Active Substance: SULFAMETHOXAZOLE\TRIMETHOPRIM
  22. MEROPENEM. [Concomitant]
     Active Substance: MEROPENEM

REACTIONS (6)
  - Gait disturbance [None]
  - Orthostatic hypotension [None]
  - Hypophagia [None]
  - Fatigue [None]
  - Cognitive disorder [None]
  - Failure to thrive [None]

NARRATIVE: CASE EVENT DATE: 20161125
